FAERS Safety Report 21446087 (Version 1)
Quarter: 2022Q4

REPORT INFORMATION
  Report Type: Spontaneous
  Country: US (occurrence: US)
  Receive Date: 20221012
  Receipt Date: 20221012
  Transmission Date: 20230113
  Serious: Yes (Hospitalization, Other)
  Sender: FDA-Public Use
  Company Number: US-MALLINCKRODT-T202205269

PATIENT
  Sex: Female

DRUGS (1)
  1. H.P. ACTHAR [Suspect]
     Active Substance: CORTICOTROPIN
     Indication: Sarcoidosis
     Dosage: 1 MILLILITER, EVERY 3 DAYS
     Route: 058
     Dates: start: 20200901

REACTIONS (3)
  - Sarcoidosis [Unknown]
  - Condition aggravated [Unknown]
  - Thrombosis [Unknown]
